FAERS Safety Report 23173647 (Version 2)
Quarter: 2024Q1

REPORT INFORMATION
  Report Type: Spontaneous
  Country: AT (occurrence: AT)
  Receive Date: 20231111
  Receipt Date: 20240321
  Transmission Date: 20240409
  Serious: Yes (Other)
  Sender: FDA-Public Use
  Company Number: None

PATIENT
  Age: 59 Year
  Sex: Male

DRUGS (2)
  1. AMOXICILLIN\CLAVULANIC ACID [Suspect]
     Active Substance: AMOXICILLIN\CLAVULANIC ACID
     Indication: Infection
     Dosage: AMOXICILLIN/CLAVULANS?URE
     Route: 065
     Dates: start: 202305
  2. PEMETREXED [Concomitant]
     Active Substance: PEMETREXED
     Indication: Chemotherapy
     Route: 050

REACTIONS (3)
  - Type IV hypersensitivity reaction [Unknown]
  - Exfoliative rash [Unknown]
  - Drug eruption [Unknown]

NARRATIVE: CASE EVENT DATE: 20230501
